FAERS Safety Report 5845801-8 (Version None)
Quarter: 2008Q3

REPORT INFORMATION
  Report Type: 
  Country: None (occurrence: None)
  Receive Date: 20080814
  Receipt Date: 20080801
  Transmission Date: 20090109
  Serious: Yes (Other)
  Sender: FDA-Public Use
  Company Number: GB-ELI_LILLY_AND_COMPANY-GB200808000586

PATIENT
  Age: 73 Year
  Sex: Female

DRUGS (2)
  1. BYETTA [Suspect]
     Indication: DIABETES MELLITUS
     Dosage: 5 UG, 2/D
     Route: 065
  2. BYETTA [Suspect]
     Dosage: 10 UG, UNKNOWN
     Route: 065

REACTIONS (10)
  - BLOOD URINE PRESENT [None]
  - CHILLS [None]
  - DECREASED APPETITE [None]
  - DYSPNOEA [None]
  - EXTRASYSTOLES [None]
  - HYPERHIDROSIS [None]
  - NAUSEA [None]
  - RENAL PAIN [None]
  - SOMNOLENCE [None]
  - WEIGHT DECREASED [None]
